FAERS Safety Report 5010792-9 (Version None)
Quarter: 2006Q2

REPORT INFORMATION
  Report Type: 
  Country: None (occurrence: None)
  Receive Date: 20060525
  Receipt Date: 20060321
  Transmission Date: 20061013
  Serious: Yes (Disabling)
  Sender: FDA-Public Use
  Company Number: 2006SE02898

PATIENT
  Age: 56 Year
  Sex: Male

DRUGS (3)
  1. CANDESARTAN [Suspect]
     Route: 048
  2. CANDESARTAN [Suspect]
     Route: 048
  3. NEBCINA [Suspect]

REACTIONS (3)
  - DEAFNESS [None]
  - PANCREATIC ABSCESS [None]
  - RENAL IMPAIRMENT [None]
